FAERS Safety Report 9328377 (Version 1)
Quarter: 2013Q2

REPORT INFORMATION
  Report Type: Spontaneous
  Country: US (occurrence: US)
  Receive Date: 20130604
  Receipt Date: 20130604
  Transmission Date: 20140414
  Serious: No
  Sender: FDA-Public Use
  Company Number: US-SANOFI-AVENTIS-2012SA059012

PATIENT
  Age: 69 Year
  Sex: Female

DRUGS (6)
  1. LANTUS [Suspect]
     Indication: DIABETES MELLITUS
     Dosage: DOSE:25 UNIT(S)
     Route: 058
     Dates: start: 201207
  2. HUMALOG [Concomitant]
     Indication: DIABETES MELLITUS
     Dosage: 5 UNITS TID WHEN BLOOD SUGAR IS 100?10 UNITS TID WHEN HIS BLOOD SUGAR ARE OVER 100
     Route: 065
     Dates: start: 201207
  3. ACETAMINOPHEN [Concomitant]
     Indication: ARTHRITIS
  4. AZOR [Concomitant]
     Indication: HYPERTENSION
  5. METOPROLOL [Concomitant]
     Indication: ARTHRITIS
  6. CYMBALTA [Concomitant]
     Indication: DIABETIC NEUROPATHY

REACTIONS (1)
  - Blood magnesium decreased [Not Recovered/Not Resolved]
